FAERS Safety Report 8729402 (Version 3)
Quarter: 2012Q4

REPORT INFORMATION
  Report Type: 
  Country: US (occurrence: US)
  Receive Date: 20120817
  Receipt Date: 20121009
  Transmission Date: 20130627
  Serious: Yes (Disabling)
  Sender: FDA-Public Use
  Company Number: US-PFIZER INC-2012199503

PATIENT
  Age: 48 Year
  Sex: Male
  Weight: 92.97 kg

DRUGS (6)
  1. LIPITOR [Suspect]
     Indication: BLOOD CHOLESTEROL INCREASED
     Dosage: 20 mg, daily
     Route: 048
     Dates: start: 2004
  2. LIPITOR [Suspect]
     Dosage: 40 mg, daily
  3. ACCUPRIL [Suspect]
     Indication: HYPERTENSION
     Dosage: 40 mg,daily
     Route: 048
     Dates: start: 2004
  4. GLIPIZIDE [Concomitant]
     Indication: DIABETES MELLITUS
     Dosage: 5 mg,daily
     Route: 048
  5. METFORMIN [Concomitant]
     Indication: DIABETES MELLITUS
     Dosage: 1000 mg, 2x/day
     Route: 048
  6. HYDROCHLOROTHIAZIDE [Concomitant]
     Dosage: UNK

REACTIONS (6)
  - Back injury [Unknown]
  - Blood cholesterol increased [Unknown]
  - Low density lipoprotein increased [Unknown]
  - Blood triglycerides increased [Unknown]
  - High density lipoprotein decreased [Unknown]
  - Malaise [Unknown]
